FAERS Safety Report 5606156-7 (Version None)
Quarter: 2008Q1

REPORT INFORMATION
  Report Type: 
  Country: None (occurrence: None)
  Receive Date: 20080129
  Receipt Date: 20071016
  Transmission Date: 20080703
  Serious: No
  Sender: FDA-Public Use
  Company Number: A0688001A

PATIENT
  Age: 39 Year
  Sex: Female

DRUGS (5)
  1. MEPRON [Suspect]
     Indication: LYME DISEASE
     Dosage: 1TBS TWICE PER DAY
     Route: 048
  2. DIFLUCAN [Concomitant]
  3. NYSTATIN [Concomitant]
  4. ZITHROMAX [Concomitant]
  5. NATURAL DESSICATED THYROID [Concomitant]

REACTIONS (4)
  - ABDOMINAL DISTENSION [None]
  - DIZZINESS [None]
  - FATIGUE [None]
  - STOMACH DISCOMFORT [None]
